FAERS Safety Report 12724409 (Version 1)
Quarter: 2016Q3

REPORT INFORMATION
  Report Type: Other
  Country: FR (occurrence: FR)
  Receive Date: 20160908
  Receipt Date: 20160908
  Transmission Date: 20161109
  Serious: Yes (Hospitalization)
  Sender: FDA-Public Use
  Company Number: FR-B. BRAUN MEDICAL INC.-1057164

PATIENT
  Age: 21 Month
  Weight: 7.85 kg

DRUGS (2)
  1. NUTRILIPID I.V. FAT EMULSION [Suspect]
     Active Substance: SOYBEAN OIL
  2. GLUCOSE 15% [Concomitant]
     Route: 042

REACTIONS (1)
  - Fat overload syndrome [Recovered/Resolved]
